FAERS Safety Report 4685033-2 (Version None)
Quarter: 2005Q2

REPORT INFORMATION
  Report Type: 
  Country: None (occurrence: None)
  Receive Date: 20050603
  Receipt Date: 20050517
  Transmission Date: 20051028
  Serious: Yes (Other)
  Sender: FDA-Public Use
  Company Number: GBWYE644705MAY05

PATIENT
  Sex: Male

DRUGS (2)
  1. EFFEXOR XR [Suspect]
     Indication: DEPRESSION
     Dosage: 1 CAPSULE 1X PER 1 DAY
     Dates: start: 20050201
  2. ALCOHOL (ETHANOL, ,0) [Suspect]
     Dosage: HALF A BOTTLE IN THE MORNING, FINISHED DRINKING AT 12 NOON

REACTIONS (2)
  - ALCOHOL INTERACTION [None]
  - BLOOD ALCOHOL INCREASED [None]
